FAERS Safety Report 4430969-0 (Version None)
Quarter: 2004Q3

REPORT INFORMATION
  Report Type: 
  Country: None (occurrence: None)
  Receive Date: 20040820
  Receipt Date: 20040810
  Transmission Date: 20050211
  Serious: Yes (Hospitalization)
  Sender: FDA-Public Use
  Company Number: 2004UW16992

PATIENT
  Age: 58 Year
  Sex: Female
  Weight: 70.7611 kg

DRUGS (4)
  1. CRESTOR [Suspect]
     Indication: BLOOD CHOLESTEROL INCREASED
     Dosage: 10 MG QD PO
     Route: 048
     Dates: start: 20040301
  2. NEXIUM [Concomitant]
  3. LIBRAX [Concomitant]
  4. TOPROL-XL [Concomitant]

REACTIONS (5)
  - BREAST PAIN [None]
  - SCAR [None]
  - SENSATION OF HEAVINESS [None]
  - SENSATION OF PRESSURE [None]
  - STENT OCCLUSION [None]
